FAERS Safety Report 13883824 (Version 1)
Quarter: 2017Q3

REPORT INFORMATION
  Report Type: Spontaneous
  Country: US (occurrence: US)
  Receive Date: 20170820
  Receipt Date: 20170820
  Transmission Date: 20171127
  Serious: No
  Sender: FDA-Public Use
  Company Number: GXBR2017US002058

PATIENT
  Sex: Female

DRUGS (1)
  1. AZITHROMYCIN 250 MG [Suspect]
     Active Substance: AZITHROMYCIN ANHYDROUS
     Indication: PHARYNGITIS
     Dosage: UNK
     Route: 065
     Dates: start: 2016

REACTIONS (3)
  - Dysgeusia [Unknown]
  - Diarrhoea [Unknown]
  - Malaise [Unknown]
